FAERS Safety Report 8896320 (Version 1)
Quarter: 2012Q4

REPORT INFORMATION
  Report Type: Spontaneous
  Country: SE (occurrence: None)
  Receive Date: 20121031
  Receipt Date: 20121031
  Transmission Date: 20130627
  Serious: Yes (Death, Hospitalization)
  Sender: FDA-Public Use
  Company Number: SE-006588

PATIENT
  Age: 60 Year
  Sex: Male

DRUGS (23)
  1. SODIUM PICOSULFATE [Suspect]
     Indication: CONSTIPATION
     Dates: start: 20110712, end: 20110725
  2. SAXAGLIPTIN [Suspect]
     Indication: TYPE II DIABETES MELLITUS
     Dates: start: 20110414
  3. METFORMIN HCL [Suspect]
     Indication: TYPE II DIABETES MELLITUS
     Dates: end: 20110711
  4. ISOPHANE INSULIN [Suspect]
     Indication: DIABETES MELLITUS
     Dates: start: 20110718
  5. INSULIN ASPART [Suspect]
     Indication: DIABETES MELLITUS
     Dates: start: 20110711, end: 20110719
  6. PLACEBO [Suspect]
     Indication: TYPE II DIABETES MELLITUS
     Dates: start: 20110414
  7. ACETYLSALICYLIC ACID [Suspect]
     Indication: PRODUCT USED FOR UNKNOWN INDICATION
     Dates: end: 20110722
  8. CLOPIDOGREL BISULFATE [Suspect]
     Indication: PRODUCT USED FOR UNKNOWN INDICATION
  9. LACTULOSE [Suspect]
     Indication: CONSTIPATION
     Dates: start: 20110720, end: 20110725
  10. DALTEPARIN SODIUM (DALTEPARIN SODIUM) UNKNOWN [Suspect]
     Indication: PRODUCT USED FOR UNKNOWN INDICATION
     Dosage: 1 Dosage; 1500 unites daily
     Dates: end: 20110711
  11. DALTEPARIN SODIUM (DALTEPARIN SODIUM) UNKNOWN [Suspect]
     Indication: PRODUCT USED FOR UNKNOWN INDICATION
     Dosage: 240 units
     Dates: start: 20110826
  12. OMEPRAZOLE [Concomitant]
  13. FUROSEMIDE [Concomitant]
  14. SPIRONOLACTONE [Concomitant]
  15. NALOXONE HCL W/OXYCODONE HCL [Concomitant]
  16. LACTITOL [Concomitant]
  17. ACETYLSALICYLIC ACID [Concomitant]
  18. ETHYLMORPHINE [Concomitant]
  19. PROPANOLOL HYDROCHLORIDE [Concomitant]
  20. METOCLOPRAMIDE HCL [Concomitant]
  21. NOSCAPINE [Concomitant]
  22. HEPARIN SODIUM [Concomitant]
  23. MORPHINE [Concomitant]

REACTIONS (15)
  - Sudden cardiac death [None]
  - Pulmonary embolism [None]
  - Inguinal hernia [None]
  - Portal vein thrombosis [None]
  - Haematuria [None]
  - Ascites [None]
  - Abdominal pain [None]
  - Nausea [None]
  - Hepatic cirrhosis [None]
  - Alcohol use [None]
  - Portal hypertension [None]
  - Gastric varices [None]
  - Dilatation ventricular [None]
  - Right ventricular failure [None]
  - Post procedural constipation [None]
